FAERS Safety Report 10300493 (Version 2)
Quarter: 2014Q3

REPORT INFORMATION
  Report Type: Spontaneous
  Country: US (occurrence: US)
  Receive Date: 20140713
  Receipt Date: 20140815
  Transmission Date: 20150326
  Serious: No
  Sender: FDA-Public Use
  Company Number: US-009507513-1407USA003996

PATIENT
  Age: 38 Year
  Sex: Female
  Weight: 92 kg

DRUGS (1)
  1. RAGWITEK [Suspect]
     Active Substance: AMBROSIA ARTEMISIIFOLIA POLLEN
     Dosage: TOTAL DAILY DOSE: 1 TABLET
     Route: 048
     Dates: start: 20140520

REACTIONS (5)
  - Diarrhoea [Recovered/Resolved]
  - Abdominal pain [Recovered/Resolved]
  - Abdominal distension [Recovered/Resolved]
  - Adverse event [Unknown]
  - Flatulence [Recovered/Resolved]

NARRATIVE: CASE EVENT DATE: 20140523
